FAERS Safety Report 23809354 (Version 5)
Quarter: 2024Q4

REPORT INFORMATION
  Report Type: Spontaneous
  Country: JP (occurrence: JP)
  Receive Date: 20240502
  Receipt Date: 20241119
  Transmission Date: 20250115
  Serious: Yes (Hospitalization)
  Sender: ABBVIE
  Company Number: JP-ABBVIE-5740298

PATIENT
  Age: 61 Year
  Sex: Female
  Weight: 35 kg

DRUGS (12)
  1. RINVOQ [Suspect]
     Active Substance: UPADACITINIB
     Indication: Rheumatoid arthritis
     Dosage: FORM STRENGTH: 15 MILLIGRAM
     Route: 048
     Dates: start: 20240308, end: 20240328
  2. RALOXIFENE [Concomitant]
     Active Substance: RALOXIFENE
     Indication: Osteoporosis
     Dosage: 60 MILLIGRAM
     Route: 048
  3. DOXAZOSIN MESYLATE [Concomitant]
     Active Substance: DOXAZOSIN MESYLATE
     Indication: Hypertension
     Dosage: 2 MILLIGRAM
     Route: 048
  4. FAMOTIDINE [Concomitant]
     Active Substance: FAMOTIDINE
     Indication: Gastric ulcer
     Dosage: FORM STRENGTH: 10 MILLIGRAM
     Route: 048
  5. ATORVASTATIN CALCIUM [Concomitant]
     Active Substance: ATORVASTATIN CALCIUM
     Indication: Dyslipidaemia
     Dosage: 5 MILLIGRAM
     Route: 048
  6. CANDESARTAN CILEXETIL [Concomitant]
     Active Substance: CANDESARTAN CILEXETIL
     Indication: Hypertension
     Dosage: 8 MILLIGRAM
     Route: 048
  7. AMLODIPINE BESYLATE [Concomitant]
     Active Substance: AMLODIPINE BESYLATE
     Indication: Hypertension
     Dosage: 10 MILLIGRAM
     Route: 048
  8. FEBUXOSTAT [Concomitant]
     Active Substance: FEBUXOSTAT
     Indication: Hyperuricaemia
     Dosage: 10 MG/0.5 TIMES A DAY
     Route: 048
  9. PREDNISOLONE [Suspect]
     Active Substance: PREDNISOLONE
     Indication: Systemic lupus erythematosus
     Dosage: 5 MILLIGRAM
     Route: 048
  10. PREDNISOLONE [Suspect]
     Active Substance: PREDNISOLONE
     Indication: Systemic lupus erythematosus
     Dosage: TIME INTERVAL: 0.33333333 DAYS: 3 MILLIGRAM
     Route: 048
  11. HYDROXYCHLOROQUINE SULFATE [Concomitant]
     Active Substance: HYDROXYCHLOROQUINE SULFATE
     Indication: Systemic lupus erythematosus
     Dosage: FORM STRENGTH: 200 MILLIGRAM
     Route: 048
  12. ATOVAQUONE [Concomitant]
     Active Substance: ATOVAQUONE
     Indication: Prophylaxis
     Dosage: 1500 MILLIGRAM?FORM STRENGTH: 15 PERCENT

REACTIONS (6)
  - Subcutaneous abscess [Recovered/Resolved]
  - Cellulitis [Recovered/Resolved]
  - Infection susceptibility increased [Unknown]
  - Gait disturbance [Unknown]
  - Traumatic ulcer [Unknown]
  - Contusion [Recovered/Resolved]

NARRATIVE: CASE EVENT DATE: 20240101
